FAERS Safety Report 20601921 (Version 1)
Quarter: 2022Q1

REPORT INFORMATION
  Report Type: Spontaneous
  Country: FR (occurrence: FR)
  Receive Date: 20220316
  Receipt Date: 20220316
  Transmission Date: 20220423
  Serious: Yes (Death)
  Sender: FDA-Public Use
  Company Number: None

PATIENT
  Age: 19 Year
  Sex: Female
  Weight: 80 kg

DRUGS (3)
  1. PROPRANOLOL [Suspect]
     Active Substance: PROPRANOLOL HYDROCHLORIDE
     Indication: Tachycardia
     Dosage: 120MG
     Route: 048
  2. IDEBENONE [Suspect]
     Active Substance: IDEBENONE
     Indication: Friedreich^s ataxia
     Dosage: MNESIS 45 MG, TABLET,UNIT DOSE:405MG
     Route: 048
     Dates: start: 202009
  3. DESOGESTREL [Suspect]
     Active Substance: DESOGESTREL
     Indication: Intermenstrual bleeding
     Dosage: ACCORDING TO CYCLE,UNIT DOSE:1DF
     Route: 048
     Dates: start: 201912

REACTIONS (2)
  - Cerebrovascular accident [Fatal]
  - Cardiogenic shock [Fatal]

NARRATIVE: CASE EVENT DATE: 20220206
